FAERS Safety Report 10857036 (Version 2)
Quarter: 2015Q2

REPORT INFORMATION
  Report Type: Spontaneous
  Country: DE (occurrence: DE)
  Receive Date: 20150223
  Receipt Date: 20150415
  Transmission Date: 20150821
  Serious: Yes (Disabling)
  Sender: FDA-Public Use
  Company Number: DE-B.I. PHARMACEUTICALS,INC./RIDGEFIELD-2014-BI-57715DE

PATIENT
  Sex: Female
  Weight: 60 kg

DRUGS (4)
  1. RASILEZ [Concomitant]
     Active Substance: ALISKIREN
     Indication: FLUID RETENTION
     Dosage: 1 ANZ
     Route: 048
  2. LISIHEXAL [Concomitant]
     Indication: BLOOD PRESSURE
     Dosage: 10 MG
     Route: 048
  3. BISOLICH [Concomitant]
     Active Substance: BISOPROLOL FUMARATE
     Indication: CEREBROVASCULAR ACCIDENT
     Dosage: 10 MG
     Route: 048
     Dates: start: 2013
  4. PRADAXA [Suspect]
     Active Substance: DABIGATRAN ETEXILATE MESYLATE
     Indication: CEREBROVASCULAR ACCIDENT
     Dosage: 220 MG
     Route: 048
     Dates: start: 20130830

REACTIONS (6)
  - Skin disorder [Not Recovered/Not Resolved]
  - Skin haemorrhage [Recovered/Resolved]
  - Erythema [Not Recovered/Not Resolved]
  - Vaginal haemorrhage [Not Recovered/Not Resolved]
  - Gingival bleeding [Recovered/Resolved]
  - Genital haemorrhage [Recovered/Resolved]
